FAERS Safety Report 7632460-7 (Version None)
Quarter: 2011Q3

REPORT INFORMATION
  Report Type: 
  Country: None (occurrence: None)
  Receive Date: 20110725
  Receipt Date: 20101004
  Transmission Date: 20111222
  Serious: No
  Sender: FDA-Public Use
  Company Number: US-BRISTOL-MYERS SQUIBB COMPANY-15284235

PATIENT
  Age: 75 Year
  Sex: Male

DRUGS (3)
  1. PLAVIX [Suspect]
     Dosage: 4 YEARS AGO
     Route: 048
     Dates: start: 20060101
  2. COUMADIN [Suspect]
     Dates: start: 20090101
  3. ASPIRIN [Suspect]
     Dates: start: 20090101

REACTIONS (1)
  - GINGIVAL BLEEDING [None]
